FAERS Safety Report 6535241-0 (Version None)
Quarter: 2010Q1

REPORT INFORMATION
  Report Type: 
  Country: None (occurrence: None)
  Receive Date: 20100113
  Receipt Date: 20100105
  Transmission Date: 20100710
  Serious: Yes (Hospitalization)
  Sender: FDA-Public Use
  Company Number: FR-ELI_LILLY_AND_COMPANY-FR200911003045

PATIENT
  Age: 71 Year
  Sex: Male

DRUGS (7)
  1. FORTEO [Suspect]
     Indication: OSTEOPOROTIC FRACTURE
     Dosage: 20 UG, DAILY (1/D)
     Route: 058
     Dates: start: 20090428
  2. NICARDIPINE HCL [Concomitant]
     Dosage: UNK, UNKNOWN
     Route: 048
  3. PLAVIX [Concomitant]
     Dosage: UNK, UNKNOWN
     Route: 048
  4. UVEDOSE [Concomitant]
     Dosage: 1 D/F, EVERY THREE MONTHS
     Route: 048
     Dates: start: 20090401
  5. VASTAREL [Concomitant]
     Dosage: UNK, UNKNOWN
     Route: 048
  6. ODRIK [Concomitant]
     Dosage: UNK, UNKNOWN
     Route: 048
  7. INEGY [Concomitant]
     Dosage: UNK, UNKNOWN

REACTIONS (1)
  - INTRACRANIAL ANEURYSM [None]
